FAERS Safety Report 9391498 (Version 1)
Quarter: 2013Q3

REPORT INFORMATION
  Report Type: Spontaneous
  Country: US (occurrence: US)
  Receive Date: 20130709
  Receipt Date: 20130709
  Transmission Date: 20140515
  Serious: No
  Sender: FDA-Public Use
  Company Number: PHEH2013US014258

PATIENT
  Sex: Male

DRUGS (3)
  1. TASIGNA [Suspect]
     Indication: CHRONIC MYELOID LEUKAEMIA
     Dosage: 150 MG/KG
     Route: 048
     Dates: start: 20130502
  2. VYTORIN [Concomitant]
  3. STATIN//ATORVASTATIN CALCIUM [Concomitant]

REACTIONS (1)
  - Blood creatine phosphokinase increased [Not Recovered/Not Resolved]
